FAERS Safety Report 20161359 (Version 1)
Quarter: 2021Q4

REPORT INFORMATION
  Report Type: Spontaneous
  Country: US (occurrence: US)
  Receive Date: 20211208
  Receipt Date: 20211208
  Transmission Date: 20220303
  Serious: Yes (Other)
  Sender: FDA-Public Use
  Company Number: US-ALKERMES INC.-ALK-2021-006307

PATIENT
  Sex: Male

DRUGS (1)
  1. VIVITROL [Suspect]
     Active Substance: NALTREXONE
     Indication: Dependence
     Dosage: 380 MILLIGRAM, QMO
     Route: 030

REACTIONS (4)
  - Injection site abscess [Recovered/Resolved]
  - Product administered at inappropriate site [Recovered/Resolved]
  - Injection site reaction [Recovered/Resolved]
  - Injection site mass [Recovered/Resolved]
